FAERS Safety Report 20769246 (Version 2)
Quarter: 2022Q2

REPORT INFORMATION
  Report Type: Spontaneous
  Country: JP (occurrence: JP)
  Receive Date: 20220429
  Receipt Date: 20220503
  Transmission Date: 20220721
  Serious: Yes (Other)
  Sender: FDA-Public Use
  Company Number: JP-PFIZER INC-202200588656

PATIENT
  Age: 69 Year
  Sex: Female

DRUGS (3)
  1. GEMCITABINE HYDROCHLORIDE [Suspect]
     Active Substance: GEMCITABINE HYDROCHLORIDE
     Indication: Pancreatic carcinoma metastatic
     Dosage: 28700 MG/M2(CUMULATIVE DOSE), CYCLIC
  2. PACLITAXEL [Suspect]
     Active Substance: PACLITAXEL
     Indication: Pancreatic carcinoma metastatic
     Dosage: 5045 MG/M2(CUMULATIVE DOSE), CYCLIC
  3. PROSTIN E2 [Suspect]
     Active Substance: DINOPROSTONE
     Dosage: UNK
     Route: 042

REACTIONS (2)
  - Extremity necrosis [Not Recovered/Not Resolved]
  - Gangrene [Not Recovered/Not Resolved]
